FAERS Safety Report 10057286 (Version 1)
Quarter: 2014Q2

REPORT INFORMATION
  Report Type: Spontaneous
  Country: US (occurrence: US)
  Receive Date: 20140403
  Receipt Date: 20140403
  Transmission Date: 20141212
  Serious: Yes (Hospitalization)
  Sender: FDA-Public Use
  Company Number: US-009507513-1404USA000325

PATIENT
  Age: 45 Year
  Sex: Female

DRUGS (4)
  1. AMITRIPTYLINE HYDROCHLORIDE [Suspect]
     Indication: ANXIETY
     Dosage: APPROXIMATELY TWICE THE PRESCRIBED DAILY 300-MG DOSE
     Route: 048
  2. AMITRIPTYLINE HYDROCHLORIDE [Suspect]
     Indication: STRESS
     Dosage: 50-MG TABLETS WHEN FEELING MORE ANXIOUS OR STRESSED
     Route: 048
  3. OXYCODONE [Concomitant]
  4. OPIATO [Concomitant]

REACTIONS (6)
  - Intentional overdose [Unknown]
  - Injury [Unknown]
  - Toxicity to various agents [Unknown]
  - Hypoaesthesia [Unknown]
  - Intentional product misuse [Unknown]
  - Feeling abnormal [Unknown]
